FAERS Safety Report 14098414 (Version 1)
Quarter: 2017Q4

REPORT INFORMATION
  Report Type: Spontaneous
  Country: US (occurrence: US)
  Receive Date: 20171017
  Receipt Date: 20171017
  Transmission Date: 20180321
  Serious: Yes (Life-Threatening)
  Sender: FDA-Public Use
  Company Number: None

PATIENT
  Age: 68 Year
  Sex: Female
  Weight: 107 kg

DRUGS (3)
  1. PROTAMINE SULFATE. [Suspect]
     Active Substance: PROTAMINE SULFATE
     Indication: HEPARIN NEUTRALISATION THERAPY
     Dosage: OTHER ROUTE:INTRA-AORTIC?
     Dates: start: 20170831
  2. PROTAMINE SULFATE. [Suspect]
     Active Substance: PROTAMINE SULFATE
     Indication: POSTOPERATIVE CARE
     Dosage: OTHER ROUTE:INTRA-AORTIC?
     Dates: start: 20170831
  3. PROTAMINE SULFATE. [Suspect]
     Active Substance: PROTAMINE SULFATE
     Indication: CARDIAC OPERATION
     Dosage: OTHER ROUTE:INTRA-AORTIC?
     Dates: start: 20170831

REACTIONS (5)
  - Postoperative respiratory failure [None]
  - Anaphylactic reaction [None]
  - Inadequate haemodialysis [None]
  - Left ventricular dilatation [None]
  - Right ventricular dilatation [None]

NARRATIVE: CASE EVENT DATE: 20170831
